FAERS Safety Report 9523669 (Version 2)
Quarter: 2013Q4

REPORT INFORMATION
  Report Type: Spontaneous
  Country: US (occurrence: US)
  Receive Date: 20130913
  Receipt Date: 20131103
  Transmission Date: 20140711
  Serious: Yes (Other)
  Sender: FDA-Public Use
  Company Number: US-009507513-1309USA003552

PATIENT
  Age: 36 Year
  Sex: Male

DRUGS (12)
  1. INTEGRILIN [Suspect]
     Indication: CORONARY ARTERY THROMBOSIS
     Dosage: DURING SECOND PCI, INTRACORONARY
     Route: 016
     Dates: start: 20130816
  2. ANGIOMAX [Suspect]
     Indication: PERCUTANEOUS CORONARY INTERVENTION
     Dosage: FIRST PCI
     Route: 042
     Dates: start: 20130812, end: 20130812
  3. ANGIOMAX [Suspect]
     Dosage: 14 ML, BOLUS, (5MG/ML)
     Route: 042
     Dates: start: 20130816, end: 20130816
  4. ANGIOMAX [Suspect]
     Dosage: 33 ML/HR, (5MG/ML), INFUSION
     Route: 042
     Dates: start: 20130816, end: 201308
  5. ANGIOMAX [Suspect]
     Indication: PERCUTANEOUS CORONARY INTERVENTION
     Dosage: FIRST PCI
     Route: 042
     Dates: start: 20130812, end: 20130812
  6. HEPARIN [Suspect]
     Indication: DIAGNOSTIC PROCEDURE
     Dosage: ADDITIONAL BOLUSES DURING 2ND PCI
     Dates: start: 20130816
  7. HEPARIN [Suspect]
     Dosage: UNK
     Dates: start: 20130816, end: 20130816
  8. HEPARIN [Concomitant]
     Indication: DIAGNOSTIC PROCEDURE
     Dosage: UNKNOWN DOSE GIVEN IN CATH LAB FOR DIAGNOSTIC PROCEDURE
     Dates: start: 20130812, end: 20130812
  9. HEPARIN [Concomitant]
     Dosage: ADDITIONAL BOLUSES DURING 2ND PCI
     Dates: start: 20130816
  10. HEPARIN [Concomitant]
     Dosage: UNK
     Dates: start: 20130812, end: 20130812
  11. PLAVIX [Concomitant]
     Dosage: UNK
     Dates: start: 201308
  12. P-GLYCOPROTEIN INHIBITOR (UNSPECIFIED) [Concomitant]
     Dosage: UNK
     Dates: start: 20130812

REACTIONS (4)
  - Arteriospasm coronary [Unknown]
  - Thrombosis in device [Unknown]
  - Therapeutic aspiration [Unknown]
  - Medical device change [Unknown]
